FAERS Safety Report 7648001-4 (Version None)
Quarter: 2011Q3

REPORT INFORMATION
  Report Type: 
  Country: None (occurrence: None)
  Receive Date: 20110801
  Receipt Date: 20110722
  Transmission Date: 20111222
  Serious: Yes (Hospitalization)
  Sender: FDA-Public Use
  Company Number: US-MYLANLABS-2011S1015493

PATIENT
  Sex: Female

DRUGS (1)
  1. RISPERIDONE [Suspect]

REACTIONS (2)
  - DRUG INEFFECTIVE [None]
  - MENTAL IMPAIRMENT [None]
